FAERS Safety Report 5823877-1 (Version None)
Quarter: 2008Q3

REPORT INFORMATION
  Report Type: 
  Country: None (occurrence: None)
  Receive Date: 20080725
  Receipt Date: 20080718
  Transmission Date: 20090109
  Serious: Yes (Other)
  Sender: FDA-Public Use
  Company Number: NL-GENENTECH-265104

PATIENT
  Age: 73 Year
  Sex: Female

DRUGS (6)
  1. CAPECITABINE [Concomitant]
     Indication: COLORECTAL CANCER
     Dosage: 1000 MG/M2, BID/D1-14/Q3W
     Route: 048
  2. OXALIPLATIN [Concomitant]
     Indication: COLORECTAL CANCER
     Dosage: 130 MG/M2, UNK
     Route: 042
  3. CETUXIMAB [Concomitant]
     Indication: COLORECTAL CANCER
     Dosage: 400 MG/M2, UNK
     Route: 042
  4. CETUXIMAB [Concomitant]
     Dosage: 250 MG/M2, 1/WEEK
     Route: 042
  5. PROTON PUMP INHIBITOR (UNK INGREDIENTS) [Concomitant]
     Indication: DRUG USE FOR UNKNOWN INDICATION
  6. BEVACIZUMAB [Suspect]
     Indication: COLORECTAL CANCER
     Dosage: 7.5UNK
     Route: 042

REACTIONS (2)
  - GASTROINTESTINAL PERFORATION [None]
  - GASTROINTESTINAL ULCER [None]
